FAERS Safety Report 14804374 (Version 2)
Quarter: 2018Q2

REPORT INFORMATION
  Report Type: Spontaneous
  Country: DE (occurrence: DE)
  Receive Date: 20180425
  Receipt Date: 20180522
  Transmission Date: 20180711
  Serious: Yes (Hospitalization, Other)
  Sender: FDA-Public Use
  Company Number: PHHY2017DE202519

PATIENT
  Age: 58 Year
  Sex: Female

DRUGS (5)
  1. ABATACEPT [Suspect]
     Active Substance: ABATACEPT
     Dosage: 750 MG, Q4WK
     Route: 042
     Dates: start: 20170830
  2. METHOTREXATE. [Suspect]
     Active Substance: METHOTREXATE
     Dosage: 7.5 MG, QWK
     Route: 065
     Dates: start: 201708
  3. ABATACEPT [Suspect]
     Active Substance: ABATACEPT
     Dosage: 750 MG, Q4WK
     Route: 042
     Dates: start: 20170607
  4. METHOTREXATE. [Suspect]
     Active Substance: METHOTREXATE
     Indication: PRODUCT USED FOR UNKNOWN INDICATION
     Dosage: 7.5 MG, QW
     Route: 065
     Dates: start: 201707
  5. ABATACEPT [Suspect]
     Active Substance: ABATACEPT
     Indication: RHEUMATOID ARTHRITIS
     Dosage: UNK
     Route: 042

REACTIONS (3)
  - Onychomycosis [Unknown]
  - Pneumonia haemophilus [Recovered/Resolved]
  - Bronchiectasis [Recovered/Resolved]

NARRATIVE: CASE EVENT DATE: 20170415
